FAERS Safety Report 9531641 (Version 5)
Quarter: 2014Q1

REPORT INFORMATION
  Report Type: Spontaneous
  Country: US (occurrence: US)
  Receive Date: 20130918
  Receipt Date: 20140220
  Transmission Date: 20141002
  Serious: Yes (Hospitalization, Other)
  Sender: FDA-Public Use
  Company Number: US-MERCK-1309USA005406

PATIENT
  Sex: Female
  Weight: 56.24 kg

DRUGS (12)
  1. FOSAMAX [Suspect]
     Indication: OSTEOPOROSIS
     Dosage: 10 MG, QD
     Route: 048
     Dates: start: 20000104
  2. FOSAMAX [Suspect]
     Dosage: 70 MG, UNK
     Route: 048
     Dates: end: 20080926
  3. ALENDRONATE SODIUM [Suspect]
     Indication: OSTEOPOROSIS
     Dosage: 10 MG, UNK
     Route: 048
     Dates: start: 20080930, end: 20100902
  4. ALENDRONATE SODIUM [Suspect]
     Dosage: 70 MG, QW
     Route: 048
  5. PRILOSEC [Concomitant]
     Dosage: UNK
     Dates: start: 1996, end: 2012
  6. METOPROLOL [Concomitant]
     Indication: HYPERTENSION
     Dosage: 50, BID
  7. LEVOXYL [Concomitant]
     Indication: HYPOTHYROIDISM
     Dosage: 88 MICROGRAM, QD
     Dates: end: 2009
  8. ASPIRIN [Concomitant]
     Dosage: UNK
     Dates: start: 1999
  9. CALCIUM (UNSPECIFIED) [Concomitant]
     Dosage: UNK
     Dates: start: 1999
  10. VITAMIN D (UNSPECIFIED) [Concomitant]
     Dosage: UNK
     Dates: start: 1999
  11. ASCORBIC ACID [Concomitant]
     Dosage: UNK
     Dates: start: 1999
  12. IRON (UNSPECIFIED) [Concomitant]
     Dosage: UNK
     Dates: start: 1999

REACTIONS (33)
  - Femur fracture [Unknown]
  - Intramedullary rod insertion [Unknown]
  - Transient ischaemic attack [Unknown]
  - Bone operation [Unknown]
  - Pneumonia [Unknown]
  - Spinal operation [Recovering/Resolving]
  - Transfusion [Unknown]
  - Spinal laminectomy [Unknown]
  - Hip fracture [Unknown]
  - Surgery [Unknown]
  - Urinary tract infection [Unknown]
  - Low turnover osteopathy [Unknown]
  - Osteopenia [Unknown]
  - Wound drainage [Unknown]
  - Fungal infection [Unknown]
  - Pain [Unknown]
  - Bacterial infection [Unknown]
  - Anaemia [Unknown]
  - Bursitis [Unknown]
  - Psychomotor hyperactivity [Unknown]
  - Decreased appetite [Unknown]
  - Spinal column stenosis [Unknown]
  - Bundle branch block right [Unknown]
  - Bundle branch block left [Unknown]
  - Cardiac murmur [Unknown]
  - Osteoarthritis [Unknown]
  - Pain [Unknown]
  - Throat irritation [Recovered/Resolved]
  - Cough [Recovered/Resolved]
  - Nausea [Unknown]
  - Diarrhoea [Unknown]
  - Arthralgia [Unknown]
  - Gastrooesophageal reflux disease [Unknown]
